FAERS Safety Report 5195866-4 (Version None)
Quarter: 2007Q1

REPORT INFORMATION
  Report Type: 
  Country: None (occurrence: None)
  Receive Date: 20070102
  Receipt Date: 20061228
  Transmission Date: 20070707
  Serious: Yes (Other)
  Sender: FDA-Public Use
  Company Number: 2006-06019

PATIENT
  Age: 47 Year
  Sex: Male

DRUGS (6)
  1. PAXIL [Suspect]
     Indication: OBSESSIVE-COMPULSIVE DISORDER
     Route: 048
     Dates: start: 19900101, end: 20000101
  2. NORTRIPTYLINE HCL [Suspect]
     Indication: OBSESSIVE-COMPULSIVE DISORDER
     Dosage: 10MG PER DAY
     Route: 048
     Dates: start: 20040101, end: 20060801
  3. XANAX [Suspect]
     Indication: OBSESSIVE-COMPULSIVE DISORDER
     Dosage: 4.5MG PER DAY
     Route: 048
     Dates: start: 19960101
  4. LORAZEPAM [Suspect]
     Indication: OBSESSIVE-COMPULSIVE DISORDER
     Route: 048
     Dates: start: 19800101, end: 19800101
  5. ZOLOFT [Suspect]
     Indication: OBSESSIVE-COMPULSIVE DISORDER
     Route: 048
     Dates: start: 19900101, end: 20000101
  6. LUVOX [Suspect]
     Indication: OBSESSIVE-COMPULSIVE DISORDER
     Route: 048
     Dates: start: 19900101, end: 20000101

REACTIONS (4)
  - EYE DISORDER [None]
  - MACULOPATHY [None]
  - RETINAL DISORDER [None]
  - VISUAL ACUITY REDUCED [None]
